FAERS Safety Report 9310268 (Version 1)
Quarter: 2013Q2

REPORT INFORMATION
  Report Type: Spontaneous
  Country: CA (occurrence: CA)
  Receive Date: 20130527
  Receipt Date: 20130527
  Transmission Date: 20140414
  Serious: Yes (Death, Other)
  Sender: FDA-Public Use
  Company Number: PHHY2013CA052584

PATIENT
  Age: 65 Year
  Sex: Female

DRUGS (4)
  1. MYFORTIC [Suspect]
     Dosage: UNK
  2. SIMULECT [Suspect]
     Dosage: UNK
     Route: 042
  3. PREDNISONE [Suspect]
     Dosage: UNK
  4. TACROLIMUS [Suspect]
     Dosage: UNK

REACTIONS (3)
  - Multi-organ failure [Fatal]
  - Respiratory failure [Fatal]
  - Pneumocystis jirovecii pneumonia [Fatal]
